FAERS Safety Report 6847216-2 (Version None)
Quarter: 2010Q2

REPORT INFORMATION
  Report Type: 
  Country: None (occurrence: None)
  Receive Date: 20100629
  Receipt Date: 20100429
  Transmission Date: 20101027
  Serious: No
  Sender: FDA-Public Use
  Company Number: US-WYE-H15015710

PATIENT
  Age: 62 Year
  Sex: Female

DRUGS (3)
  1. PRISTIQ [Suspect]
     Indication: PANIC DISORDER
     Dosage: 50 MG 1X PER 1 DAY, ORAL
     Route: 048
     Dates: start: 20090101
  2. CLONAZEPAM [Concomitant]
  3. ACTONEL (RISEEDRONATE) [Concomitant]

REACTIONS (1)
  - HEADACHE [None]
